FAERS Safety Report 8649910 (Version 3)
Quarter: 2012Q4

REPORT INFORMATION
  Report Type: 
  Country: US (occurrence: US)
  Receive Date: 20120705
  Receipt Date: 20120906
  Transmission Date: 20130627
  Serious: Yes (Hospitalization, Other)
  Sender: FDA-Public Use
  Company Number: US-PFIZER INC-2012159993

PATIENT
  Age: 57 Year
  Sex: Female
  Weight: 63.49 kg

DRUGS (4)
  1. NEURONTIN [Suspect]
     Indication: NEUROPATHY PERIPHERAL
     Dosage: 300 mg, 4x/day
     Dates: start: 2008
  2. LIPITOR [Suspect]
     Indication: BLOOD CHOLESTEROL INCREASED
     Dosage: 40 mg, daily
     Route: 048
  3. LANTUS [Concomitant]
     Indication: DIABETES MELLITUS
     Dosage: 15 IU, 1x/day
  4. METFORMIN [Concomitant]
     Indication: DIABETES MELLITUS
     Dosage: 40 mg, 2x/day

REACTIONS (5)
  - Cardiac failure congestive [Unknown]
  - Limb operation [Unknown]
  - Cardiac disorder [Unknown]
  - Dyspnoea [Unknown]
  - Foot fracture [Unknown]
